FAERS Safety Report 5754410-0 (Version None)
Quarter: 2008Q2

REPORT INFORMATION
  Report Type: 
  Country: None (occurrence: None)
  Receive Date: 20080530
  Receipt Date: 20080528
  Transmission Date: 20081010
  Serious: Yes (Hospitalization)
  Sender: FDA-Public Use
  Company Number: US-BOEHRINGER INGELHEIM GMBH, GERMANY-2008-BP-08249RO

PATIENT
  Age: 77 Year
  Sex: Male

DRUGS (9)
  1. PROPRANOLOL [Suspect]
  2. DILTIAZEM [Suspect]
  3. XALATAN [Suspect]
  4. TIMOLOL MALEATE [Suspect]
  5. DOPAMINE HCL [Concomitant]
  6. CALCIUM GLUCONATE [Concomitant]
  7. DEXTROSE [Concomitant]
  8. REGULAR INSULIN [Concomitant]
  9. KAYEXALATE [Concomitant]

REACTIONS (10)
  - ATRIOVENTRICULAR BLOCK COMPLETE [None]
  - BLOOD CREATININE INCREASED [None]
  - BLOOD GLUCOSE INCREASED [None]
  - BLOOD UREA INCREASED [None]
  - HYPERKALAEMIA [None]
  - METABOLIC ACIDOSIS [None]
  - NODAL RHYTHM [None]
  - OBSTRUCTIVE UROPATHY [None]
  - RENAL TUBULAR ACIDOSIS [None]
  - SINUS BRADYCARDIA [None]
